FAERS Safety Report 8122686 (Version 6)
Quarter: 2021Q1

REPORT INFORMATION
  Report Type: Spontaneous
  Country: US (occurrence: US)
  Receive Date: 20110906
  Receipt Date: 20210331
  Transmission Date: 20210420
  Serious: Yes (Other)
  Sender: FDA-Public Use
  Company Number: US-AMGEN-USASP2011038647

PATIENT
  Age: 74 Year
  Sex: Female
  Weight: 49.89 kg

DRUGS (11)
  1. CALCIUM [Concomitant]
     Active Substance: CALCIUM
     Dosage: 1 MILLIGRAM
  2. CALCIUM CARBONATE W/VITAMIN D      /00944201/ [Concomitant]
     Active Substance: CALCIUM CARBONATE\CHOLECALCIFEROL
     Dosage: UNK
  3. PREMARIN [Concomitant]
     Active Substance: ESTROGENS, CONJUGATED
     Dosage: UNK
     Dates: end: 201107
  4. PROVERA [Concomitant]
     Active Substance: MEDROXYPROGESTERONE ACETATE
     Dosage: 10 MG, UNK
     Dates: end: 201107
  5. VITAMIN D3 [Concomitant]
     Active Substance: CHOLECALCIFEROL
     Dosage: UNK
  6. MULTIVITAMIN                       /00097801/ [Concomitant]
     Active Substance: VITAMINS
     Dosage: UNK
  7. VITAMIN C [Concomitant]
     Active Substance: ASCORBIC ACID
     Dosage: 2000 MG, UNK
  8. PROLIA [Suspect]
     Active Substance: DENOSUMAB
     Indication: OSTEOPOROSIS POSTMENOPAUSAL
     Dosage: 60 MILLIGRAM, Q6MO
     Route: 065
  9. GLUCOSAMINE CHONDROITIN [Concomitant]
     Active Substance: CHONDROITIN SULFATE (BOVINE)\GLUCOSAMINE HYDROCHLORIDE
     Dosage: UNK
  10. VITAMIN D                          /00107901/ [Concomitant]
     Active Substance: ERGOCALCIFEROL
     Dosage: 1 MILLIGRAM
  11. LOVAZA [Concomitant]
     Active Substance: OMEGA-3-ACID ETHYL ESTERS
     Dosage: UNK

REACTIONS (9)
  - Incision site impaired healing [Unknown]
  - Gingival operation [Unknown]
  - Dental operation [Unknown]
  - Intraductal proliferative breast lesion [Unknown]
  - Tooth repair [Not Recovered/Not Resolved]
  - Hip arthroplasty [Unknown]
  - Neck pain [Recovering/Resolving]
  - Bone density decreased [Unknown]
  - Tooth abscess [Unknown]

NARRATIVE: CASE EVENT DATE: 20110706
